FAERS Safety Report 13928507 (Version 2)
Quarter: 2017Q4

REPORT INFORMATION
  Report Type: Spontaneous
  Country: GB (occurrence: GB)
  Receive Date: 20170901
  Receipt Date: 20171018
  Transmission Date: 20180320
  Serious: Yes (Death, Life-Threatening, Hospitalization, Other)
  Sender: FDA-Public Use
  Company Number: GB-TEVA-800942ACC

PATIENT
  Age: 77 Year
  Sex: Female
  Weight: 92.2 kg

DRUGS (14)
  1. REVLIMID [Suspect]
     Active Substance: LENALIDOMIDE
     Dosage: 25 MILLIGRAM DAILY; 25 MILLIGRAM
     Route: 048
     Dates: start: 20161210
  2. ACICLOVIR [Concomitant]
     Active Substance: ACYCLOVIR
     Indication: ANTIVIRAL PROPHYLAXIS
     Dosage: 800 MILLIGRAM DAILY; 800 MILLIGRAM
     Route: 048
     Dates: start: 20161209
  3. LISINOPRIL. [Concomitant]
     Active Substance: LISINOPRIL
     Indication: HYPERTENSION
     Dosage: 20 MILLIGRAM DAILY; 20 MILLIGRAM
     Route: 048
  4. ALLOPURINOL. [Concomitant]
     Active Substance: ALLOPURINOL
     Indication: RENAL APLASIA
     Dosage: 300 MILLIGRAM DAILY; 300 MILLIGRAM
     Route: 048
  5. FUSIDIC ACID [Concomitant]
     Active Substance: FUSIDIC ACID
     Indication: SKIN LESION
     Dosage: POULTICE
     Route: 061
     Dates: start: 20161205
  6. GAVISCON ADVANCE [Concomitant]
     Active Substance: POTASSIUM BICARBONATE\SODIUM ALGINATE
     Indication: GASTRITIS
     Dosage: 30 ML DAILY; 30 MILLILITER
     Route: 048
     Dates: start: 20161205
  7. PROPRANOLOL [Concomitant]
     Active Substance: PROPRANOLOL HYDROCHLORIDE
     Indication: HYPERTENSION
     Dosage: 20 MILLIGRAM DAILY; 20 MILLIGRAM
     Route: 048
  8. COTRIMOXAZOLE [Concomitant]
     Active Substance: SULFAMETHOXAZOLE\TRIMETHOPRIM
     Indication: ANTIBIOTIC PROPHYLAXIS
     Dosage: 180 MILLIGRAM DAILY; 180 MILLIGRAM
     Route: 048
     Dates: start: 20161209
  9. DEXAMETHASONE. [Suspect]
     Active Substance: DEXAMETHASONE
     Indication: PLASMA CELL MYELOMA
     Dosage: 20 MILLIGRAM DAILY; 20 MILLIGRAM
     Route: 048
     Dates: start: 20161210, end: 20170124
  10. REVLIMID [Suspect]
     Active Substance: LENALIDOMIDE
     Indication: PLASMA CELL MYELOMA
     Dosage: 20 MILLIGRAM DAILY; 20 MILLIGRAM
     Route: 048
     Dates: end: 20170123
  11. OMEPRAZOLE. [Concomitant]
     Active Substance: OMEPRAZOLE
     Indication: PROPHYLAXIS
     Dosage: 20 MILLIGRAM DAILY; 20 MILLIGRAM
     Route: 048
  12. DALTEPARIN [Concomitant]
     Active Substance: DALTEPARIN
     Indication: ANTICOAGULANT THERAPY
     Dosage: 500 IU (INTERNATIONAL UNIT) DAILY; 500 IU (INTERNATIONAL UNIT)
     Route: 058
     Dates: start: 20161209
  13. DOXAZOSIN [Concomitant]
     Active Substance: DOXAZOSIN\DOXAZOSIN MESYLATE
     Indication: HYPERTENSION
     Dosage: 2 MILLIGRAM DAILY; 2 MILLIGRAM
     Route: 048
     Dates: start: 201611
  14. FLUCONAZOLE. [Concomitant]
     Active Substance: FLUCONAZOLE
     Indication: ANTIVIRAL PROPHYLAXIS
     Dosage: 50 MILLIGRAM DAILY; 50 MILLIGRAM
     Route: 048
     Dates: start: 20161209, end: 20170124

REACTIONS (3)
  - Sepsis [Unknown]
  - Hepatic failure [Fatal]
  - Hyperbilirubinaemia [Not Recovered/Not Resolved]

NARRATIVE: CASE EVENT DATE: 20170124
